FAERS Safety Report 6567534-5 (Version None)
Quarter: 2010Q1

REPORT INFORMATION
  Report Type: 
  Country: None (occurrence: None)
  Receive Date: 20100202
  Receipt Date: 20100120
  Transmission Date: 20100710
  Serious: Yes (Other)
  Sender: FDA-Public Use
  Company Number: US-GENENTECH-297456

PATIENT
  Sex: Female

DRUGS (5)
  1. XOLAIR [Suspect]
     Indication: DRUG USE FOR UNKNOWN INDICATION
  2. ADVAIR DISKUS 100/50 [Suspect]
     Indication: DRUG USE FOR UNKNOWN INDICATION
  3. ZYRTEC [Suspect]
     Indication: DRUG USE FOR UNKNOWN INDICATION
  4. ALBUTEROL [Suspect]
     Indication: DRUG USE FOR UNKNOWN INDICATION
  5. NASAL SPRAY NOS [Suspect]
     Indication: DRUG USE FOR UNKNOWN INDICATION

REACTIONS (3)
  - HYPERSENSITIVITY [None]
  - MASS [None]
  - MOLE EXCISION [None]
